FAERS Safety Report 23978744 (Version 1)
Quarter: 2024Q2

REPORT INFORMATION
  Report Type: Report from Study
  Country: CA (occurrence: CA)
  Receive Date: 20240615
  Receipt Date: 20240615
  Transmission Date: 20240716
  Serious: Yes (Other)
  Sender: FDA-Public Use
  Company Number: CA-ABBVIE-5654844

PATIENT
  Sex: Male

DRUGS (1)
  1. RINVOQ [Suspect]
     Active Substance: UPADACITINIB
     Indication: Rheumatoid arthritis
     Route: 048
     Dates: start: 20230812

REACTIONS (9)
  - Portal hypertension [Unknown]
  - Weight increased [Unknown]
  - Liver function test increased [Unknown]
  - Splenomegaly [Unknown]
  - Waist circumference increased [Unknown]
  - Hypertransaminasaemia [Unknown]
  - Oedema peripheral [Recovering/Resolving]
  - Hepatic enzyme increased [Recovering/Resolving]
  - Hepatic failure [Unknown]

NARRATIVE: CASE EVENT DATE: 20230101
